FAERS Safety Report 23422914 (Version 5)
Quarter: 2025Q1

REPORT INFORMATION
  Report Type: Spontaneous
  Country: US (occurrence: US)
  Receive Date: 20240119
  Receipt Date: 20250115
  Transmission Date: 20250409
  Serious: No
  Sender: SANOFI AVENTIS
  Company Number: US-SA-SAC20240116000667

PATIENT
  Age: 56 Year
  Sex: Female
  Weight: 101 kg

DRUGS (12)
  1. DUPIXENT [Suspect]
     Active Substance: DUPILUMAB
     Indication: Dermatitis atopic
     Dosage: 300 MG, QOW
     Route: 058
     Dates: start: 202310, end: 2024
  2. DUPIXENT [Suspect]
     Active Substance: DUPILUMAB
     Dosage: 300 MG, QOW
     Route: 058
     Dates: start: 2024
  3. WEGOVY [Suspect]
     Active Substance: SEMAGLUTIDE
     Route: 065
  4. VITAMIN D2 [Concomitant]
     Active Substance: ERGOCALCIFEROL
  5. ESCITALOPRAM [Concomitant]
     Active Substance: ESCITALOPRAM OXALATE
  6. VALSARTAN [Concomitant]
     Active Substance: VALSARTAN
  7. METHOCARBAMOL [Concomitant]
     Active Substance: METHOCARBAMOL
  8. IBUPROFEN [Concomitant]
     Active Substance: IBUPROFEN
  9. ESTRADIOL [Concomitant]
     Active Substance: ESTRADIOL
  10. HYDROCHLOROTHIAZIDE\VALSARTAN [Concomitant]
     Active Substance: HYDROCHLOROTHIAZIDE\VALSARTAN
  11. GABAPENTIN [Concomitant]
     Active Substance: GABAPENTIN
  12. TERBINAFINE [Concomitant]
     Active Substance: TERBINAFINE

REACTIONS (8)
  - Feeling abnormal [Not Recovered/Not Resolved]
  - Ankle fracture [Recovering/Resolving]
  - Skin exfoliation [Not Recovered/Not Resolved]
  - Nausea [Recovering/Resolving]
  - Feeding disorder [Recovering/Resolving]
  - Eczema [Recovering/Resolving]
  - Inappropriate schedule of product administration [Unknown]
  - Therapeutic response decreased [Unknown]

NARRATIVE: CASE EVENT DATE: 20240101
